FAERS Safety Report 6025664-0 (Version None)
Quarter: 2008Q4

REPORT INFORMATION
  Report Type: 
  Country: None (occurrence: None)
  Receive Date: 20081231
  Receipt Date: 20081218
  Transmission Date: 20090506
  Serious: Yes (Hospitalization)
  Sender: FDA-Public Use
  Company Number: JP-GENENTECH-274668

PATIENT
  Age: 49 Year
  Sex: Male

DRUGS (2)
  1. AVASTIN [Suspect]
     Indication: LARGE INTESTINE CARCINOMA
     Dosage: 100 MG, 2/WEEK
     Route: 042
     Dates: start: 20081001
  2. OXALIPLATIN [Suspect]
     Indication: LARGE INTESTINE CARCINOMA

REACTIONS (1)
  - SHOCK [None]
